FAERS Safety Report 8557801-8 (Version None)
Quarter: 2012Q3

REPORT INFORMATION
  Report Type: 
  Country: None (occurrence: None)
  Receive Date: 20120801
  Receipt Date: 20100829
  Transmission Date: 20120928
  Serious: Yes (Other)
  Sender: FDA-Public Use
  Company Number: CO-PFIZER INC-2012180910

PATIENT
  Sex: Female

DRUGS (6)
  1. OLMESARTAN MEDOXOMIL [Suspect]
     Indication: HYPERTENSION
     Dosage: 1 DF, 1X/DAY
     Route: 048
  2. METFORMIN [Concomitant]
     Dosage: 1 DF, 1X/DAY
     Route: 048
  3. METOPROLOL TARTRATE [Concomitant]
     Dosage: 1 DF, 1X/DAY
     Route: 048
  4. AMLODIPINE [Concomitant]
     Dosage: 1 DF, 2X/DAY
     Route: 048
  5. GLIBENCLAMIDE [Concomitant]
     Dosage: 1 DF, 2X/DAY
     Route: 048
  6. LIPITOR [Suspect]
     Indication: DYSLIPIDAEMIA
     Dosage: 1 DF, 1X/DAY
     Route: 048

REACTIONS (1)
  - HYPERTENSIVE EMERGENCY [None]
